FAERS Safety Report 25224427 (Version 1)
Quarter: 2025Q2

REPORT INFORMATION
  Report Type: Other
  Country: IN (occurrence: IN)
  Receive Date: 20250422
  Receipt Date: 20250422
  Transmission Date: 20250717
  Serious: Yes (Hospitalization)
  Sender: ANI
  Company Number: IN-ANIPHARMA-022364

PATIENT
  Sex: Female

DRUGS (1)
  1. MISOPROSTOL [Suspect]
     Active Substance: MISOPROSTOL
     Indication: Labour augmentation
     Route: 048

REACTIONS (2)
  - Hypertonia [Unknown]
  - Maternal exposure during delivery [Unknown]
